FAERS Safety Report 25570547 (Version 2)
Quarter: 2025Q3

REPORT INFORMATION
  Report Type: Spontaneous
  Country: US (occurrence: US)
  Receive Date: 20250717
  Receipt Date: 20250808
  Transmission Date: 20251020
  Serious: Yes (Hospitalization)
  Sender: TEVA
  Company Number: US-TEVA-VS-3350154

PATIENT
  Sex: Male

DRUGS (6)
  1. LORAZEPAM [Suspect]
     Active Substance: LORAZEPAM
     Indication: Hallucination
     Route: 065
  2. HALOPERIDOL [Suspect]
     Active Substance: HALOPERIDOL
     Indication: Hallucination
     Route: 065
  3. CARBAMAZEPINE [Suspect]
     Active Substance: CARBAMAZEPINE
     Indication: Hallucination
     Route: 065
  4. BUPROPION [Suspect]
     Active Substance: BUPROPION
     Indication: Hallucination
     Route: 065
  5. OLANZAPINE [Suspect]
     Active Substance: OLANZAPINE
     Indication: Hallucination
     Route: 065
  6. GUANFACINE [Concomitant]
     Active Substance: GUANFACINE
     Indication: Hallucination
     Route: 065

REACTIONS (2)
  - Hallucination [Unknown]
  - Illusion [Unknown]
